FAERS Safety Report 22161237 (Version 1)
Quarter: 2023Q1

REPORT INFORMATION
  Report Type: Spontaneous
  Country: US (occurrence: US)
  Receive Date: 20230331
  Receipt Date: 20230331
  Transmission Date: 20230418
  Serious: No
  Sender: FDA-Public Use
  Company Number: US-VERTEX PHARMACEUTICALS-2023-004507

PATIENT

DRUGS (3)
  1. TRIKAFTA [Suspect]
     Active Substance: ELEXACAFTOR\IVACAFTOR\TEZACAFTOR
     Indication: Cystic fibrosis
     Dosage: UNKNOWN FREQUENCY
     Route: 048
     Dates: start: 2021
  2. PULMOZYME [Concomitant]
     Active Substance: DORNASE ALFA
     Indication: Pseudomonas test positive
  3. PULMOZYME [Concomitant]
     Active Substance: DORNASE ALFA
     Indication: Productive cough

REACTIONS (2)
  - Cough [Not Recovered/Not Resolved]
  - Pseudomonas test positive [Unknown]

NARRATIVE: CASE EVENT DATE: 20221201
